FAERS Safety Report 9674875 (Version 3)
Quarter: 2014Q3

REPORT INFORMATION
  Report Type: Report from Study
  Country: KR (occurrence: KR)
  Receive Date: 20131107
  Receipt Date: 20140912
  Transmission Date: 20150326
  Serious: Yes (Hospitalization, Other)
  Sender: FDA-Public Use
  Company Number: PHHY2013KR079695

PATIENT
  Age: 70 Year
  Sex: Male
  Weight: 65 kg

DRUGS (1)
  1. INDACATEROL [Suspect]
     Active Substance: INDACATEROL
     Dosage: 150 UG, UNK
     Route: 055
     Dates: start: 20130414

REACTIONS (1)
  - Laceration [Recovered/Resolved]

NARRATIVE: CASE EVENT DATE: 20130509
